FAERS Safety Report 6392523-3 (Version None)
Quarter: 2009Q4

REPORT INFORMATION
  Report Type: 
  Country: None (occurrence: None)
  Receive Date: 20091007
  Receipt Date: 20090925
  Transmission Date: 20100525
  Serious: Yes (Hospitalization)
  Sender: FDA-Public Use
  Company Number: US-ELI_LILLY_AND_COMPANY-US200908000561

PATIENT
  Sex: Female
  Weight: 56.236 kg

DRUGS (7)
  1. CYMBALTA [Suspect]
     Indication: PAIN
     Dosage: 30 MG, 2/D
  2. CYMBALTA [Suspect]
     Dosage: 30 MG, 2/D
  3. CYMBALTA [Suspect]
     Dosage: 30 MG, 2/D
  4. CYMBALTA [Suspect]
     Dosage: 30 MG, 2/D
  5. CYMBALTA [Suspect]
     Dosage: 30 MG, 2/D
  6. ADDERALL 10 [Concomitant]
     Dosage: 30 MG, DAILY (1/D)
     Route: 048
  7. KLONOPIN [Concomitant]
     Dosage: 2 MG, EVERY 8-12 HRS, PRN
     Route: 048

REACTIONS (17)
  - BACK PAIN [None]
  - BLISTER [None]
  - BLOOD PRESSURE [None]
  - BONE PAIN [None]
  - DECREASED APPETITE [None]
  - DIZZINESS [None]
  - DRUG SCREEN FALSE POSITIVE [None]
  - FEELING ABNORMAL [None]
  - HALLUCINATION [None]
  - HEADACHE [None]
  - HOSPITALISATION [None]
  - MASS [None]
  - OFF LABEL USE [None]
  - PRODUCT TAMPERING [None]
  - RASH [None]
  - THERMAL BURN [None]
  - VOMITING [None]
